FAERS Safety Report 6544866-8 (Version None)
Quarter: 2010Q1

REPORT INFORMATION
  Report Type: 
  Country: None (occurrence: None)
  Receive Date: 20100121
  Receipt Date: 20100112
  Transmission Date: 20100710
  Serious: Yes (Hospitalization)
  Sender: FDA-Public Use
  Company Number: US-ELI_LILLY_AND_COMPANY-US201001002223

PATIENT
  Age: 29 Year
  Sex: Female

DRUGS (3)
  1. ZYPREXA [Suspect]
     Indication: BIPOLAR DISORDER
     Dosage: 60 MG, DAILY (1/D)
  2. HALDOL [Concomitant]
     Dosage: 10 MG, UNK
  3. DEPAKOTE [Concomitant]
     Dosage: 2500 MG, UNK

REACTIONS (5)
  - BIPOLAR DISORDER [None]
  - DRUG EXPOSURE DURING PREGNANCY [None]
  - DRUG INEFFECTIVE [None]
  - OVERDOSE [None]
  - PSYCHOTIC DISORDER [None]
